FAERS Safety Report 22351724 (Version 1)
Quarter: 2023Q2

REPORT INFORMATION
  Report Type: Spontaneous
  Country: IT (occurrence: IT)
  Receive Date: 20230522
  Receipt Date: 20230522
  Transmission Date: 20230721
  Serious: Yes (Death, Hospitalization, Other)
  Sender: FDA-Public Use
  Company Number: IT-PFIZER INC-PV202300088170

PATIENT
  Age: 73 Year
  Sex: Male

DRUGS (1)
  1. BOSUTINIB [Suspect]
     Active Substance: BOSUTINIB
     Indication: Chronic myeloid leukaemia
     Dosage: 300 MG
     Dates: start: 20170610

REACTIONS (4)
  - Respiratory failure [Fatal]
  - Pneumonia [Unknown]
  - Pyrexia [Unknown]
  - Dyspnoea [Unknown]

NARRATIVE: CASE EVENT DATE: 20170701
